FAERS Safety Report 8241065-9 (Version None)
Quarter: 2012Q1

REPORT INFORMATION
  Report Type: 
  Country: None (occurrence: None)
  Receive Date: 20120328
  Receipt Date: 20120322
  Transmission Date: 20120608
  Serious: Yes (Hospitalization, Disabling)
  Sender: FDA-Public Use
  Company Number: US-GLAXOSMITHKLINE-A0892848A

PATIENT
  Sex: Male

DRUGS (2)
  1. CRESTOR [Concomitant]
  2. AVANDIA [Suspect]
     Indication: TYPE 2 DIABETES MELLITUS
     Dosage: 8MG PER DAY
     Route: 048
     Dates: start: 20040701, end: 20061201

REACTIONS (15)
  - COMA [None]
  - ANGINA PECTORIS [None]
  - BLINDNESS [None]
  - CEREBRAL HAEMORRHAGE [None]
  - CORONARY ARTERY DISEASE [None]
  - CEREBROVASCULAR ACCIDENT [None]
  - ABASIA [None]
  - WHEELCHAIR USER [None]
  - RENAL DISORDER [None]
  - AMNESIA [None]
  - SINUS DISORDER [None]
  - DISABILITY [None]
  - CORONARY ARTERY BYPASS [None]
  - CARDIAC DISORDER [None]
  - CHEST PAIN [None]
